FAERS Safety Report 8273898-7 (Version None)
Quarter: 2012Q2

REPORT INFORMATION
  Report Type: 
  Country: None (occurrence: None)
  Receive Date: 20120411
  Receipt Date: 20120402
  Transmission Date: 20120825
  Serious: No
  Sender: FDA-Public Use
  Company Number: US-ASTRAZENECA-2011SE06643

PATIENT
  Age: 64 Year
  Sex: Female

DRUGS (2)
  1. TOPROL-XL [Suspect]
     Route: 048
  2. SYMBICORT [Suspect]
     Dosage: 80/4.5 MCG, TWO PUFFS TWICE DAILY
     Route: 055

REACTIONS (2)
  - INFECTION [None]
  - DRUG DOSE OMISSION [None]
